FAERS Safety Report 26135414 (Version 1)
Quarter: 2025Q4

REPORT INFORMATION
  Report Type: Spontaneous
  Country: US (occurrence: US)
  Receive Date: 20251209
  Receipt Date: 20251209
  Transmission Date: 20260118
  Serious: No
  Sender: BAYER HEALTHCARE LLC
  Company Number: US-BAYER-2025A162199

PATIENT
  Sex: Female

DRUGS (6)
  1. CLARITIN [Suspect]
     Active Substance: LORATADINE
     Indication: Sneezing
     Dosage: 10 MG
     Route: 048
  2. CLARITIN [Suspect]
     Active Substance: LORATADINE
     Indication: Rhinorrhoea
  3. CLARITIN [Suspect]
     Active Substance: LORATADINE
     Indication: Eye pruritus
  4. CLARITIN [Suspect]
     Active Substance: LORATADINE
     Indication: Lacrimation increased
  5. CLARITIN [Suspect]
     Active Substance: LORATADINE
     Indication: Throat irritation
  6. CLARITIN [Suspect]
     Active Substance: LORATADINE
     Indication: Nasal pruritus

REACTIONS (1)
  - Drug ineffective [Unknown]
